FAERS Safety Report 16952264 (Version 3)
Quarter: 2019Q4

REPORT INFORMATION
  Report Type: Report from Study
  Country: CA (occurrence: CA)
  Receive Date: 20191023
  Receipt Date: 20191202
  Transmission Date: 20200122
  Serious: Yes (Hospitalization)
  Sender: FDA-Public Use
  Company Number: PHHY2018CA187144

PATIENT
  Sex: Female

DRUGS (2)
  1. ERELZI [Suspect]
     Active Substance: ETANERCEPT-SZZS
     Dosage: 50 MG, QW
     Route: 058
     Dates: start: 20181206
  2. ERELZI [Suspect]
     Active Substance: ETANERCEPT-SZZS
     Indication: RHEUMATOID ARTHRITIS
     Dosage: 50 MG, QW
     Route: 058
     Dates: start: 20180308

REACTIONS (8)
  - Mobility decreased [Unknown]
  - Ill-defined disorder [Unknown]
  - Hepatic cirrhosis [Not Recovered/Not Resolved]
  - Malaise [Unknown]
  - Renal abscess [Unknown]
  - Pain in extremity [Unknown]
  - Chills [Unknown]
  - Nasopharyngitis [Unknown]
